FAERS Safety Report 14351613 (Version 1)
Quarter: 2018Q1

REPORT INFORMATION
  Report Type: Spontaneous
  Country: FR (occurrence: FR)
  Receive Date: 20180104
  Receipt Date: 20180104
  Transmission Date: 20180509
  Serious: Yes (Hospitalization)
  Sender: FDA-Public Use
  Company Number: FR-JNJFOC-20180102932

PATIENT
  Age: 83 Year
  Sex: Female
  Weight: 92 kg

DRUGS (1)
  1. XARELTO [Suspect]
     Active Substance: RIVAROXABAN
     Indication: THROMBOSIS PROPHYLAXIS
     Route: 048
     Dates: end: 20171209

REACTIONS (3)
  - Melaena [Recovered/Resolved]
  - Acute kidney injury [Recovering/Resolving]
  - Anaemia [Recovering/Resolving]
